FAERS Safety Report 4922001-7 (Version None)
Quarter: 2006Q1

REPORT INFORMATION
  Report Type: 
  Country: None (occurrence: None)
  Receive Date: 20060222
  Receipt Date: 20060222
  Transmission Date: 20060701
  Serious: Yes (Hospitalization)
  Sender: FDA-Public Use
  Company Number: None

PATIENT
  Age: 85 Year
  Sex: Female
  Weight: 45.3597 kg

DRUGS (24)
  1. ENOXAPARIN SODIUM [Suspect]
     Indication: THROMBOSIS PROPHYLAXIS
     Dosage: 30 MG SQ DAILY
     Route: 058
     Dates: start: 20050829, end: 20050905
  2. THERAGRAM [Concomitant]
  3. SIMVASTATIN [Concomitant]
  4. MUCOMYST [Concomitant]
  5. PLAVIX [Concomitant]
  6. ... [Concomitant]
  7. LEXAPRO [Concomitant]
  8. ZETIA [Concomitant]
  9. LEVAQUIN [Concomitant]
  10. ZOSYN [Concomitant]
  11. IRON [Concomitant]
  12. ADVAIR DISKUS 100/50 [Concomitant]
  13. POTASSIUM [Concomitant]
  14. DUONEB [Concomitant]
  15. PREVACID [Concomitant]
  16. ALBUTEROL [Concomitant]
  17. CLONIDINE [Concomitant]
  18. DULCOLAX [Concomitant]
  19. LACTULOSE [Concomitant]
  20. ATIVAN [Concomitant]
  21. COZAAR [Concomitant]
  22. MEGACE [Concomitant]
  23. SOLU-MEDROL [Concomitant]
  24. TOPROL-XL [Concomitant]

REACTIONS (3)
  - ABDOMINAL PAIN LOWER [None]
  - HAEMATOMA [None]
  - HAEMORRHAGE [None]
